FAERS Safety Report 9629770 (Version 3)
Quarter: 2013Q4

REPORT INFORMATION
  Report Type: Spontaneous
  Country: JP (occurrence: JP)
  Receive Date: 20131017
  Receipt Date: 20131113
  Transmission Date: 20140711
  Serious: Yes (Hospitalization)
  Sender: FDA-Public Use
  Company Number: JP-GLAXOSMITHKLINE-B0931178A

PATIENT
  Age: 77 Year
  Sex: Female
  Weight: 57 kg

DRUGS (13)
  1. VALTREX [Suspect]
     Indication: HERPES ZOSTER
     Dosage: 1000MG THREE TIMES PER DAY
     Route: 048
     Dates: start: 20131007, end: 20131010
  2. METILDIGOXIN [Suspect]
     Indication: ARRHYTHMIA
     Dosage: .05MG PER DAY
     Route: 048
     Dates: end: 20131010
  3. SUNRYTHM [Suspect]
     Indication: ARRHYTHMIA
     Dosage: 50MG THREE TIMES PER DAY
     Route: 048
     Dates: end: 20131010
  4. OLMETEC [Concomitant]
     Indication: HYPERTENSION
     Dosage: 20MG PER DAY
     Route: 048
     Dates: end: 20131010
  5. ARTIST [Concomitant]
     Dosage: 2.5MG TWICE PER DAY
     Route: 048
     Dates: end: 20131010
  6. LIVALO [Concomitant]
     Indication: DYSLIPIDAEMIA
     Dosage: 2MG PER DAY
     Route: 048
  7. PARIET [Concomitant]
     Indication: GASTRIC ULCER
     Dosage: 10MG PER DAY
     Route: 048
  8. BAYASPIRIN [Concomitant]
     Route: 048
     Dates: end: 20131010
  9. APONOL [Concomitant]
     Dosage: 20MG THREE TIMES PER DAY
     Route: 048
     Dates: end: 20131010
  10. SELBEX [Concomitant]
     Dosage: 50MG THREE TIMES PER DAY
     Route: 048
  11. DEPAS [Concomitant]
     Dosage: .5MG PER DAY
     Route: 048
  12. SG [Concomitant]
     Indication: HEADACHE
     Route: 048
     Dates: end: 20131010
  13. PONTAL [Concomitant]
     Indication: HEADACHE
     Route: 048
     Dates: end: 20131010

REACTIONS (13)
  - Anuria [Recovering/Resolving]
  - Electrocardiogram QT prolonged [Recovering/Resolving]
  - Renal impairment [Recovering/Resolving]
  - Renal failure acute [Recovering/Resolving]
  - Malaise [Recovered/Resolved]
  - Nausea [Recovered/Resolved]
  - Nausea [Recovering/Resolving]
  - Face oedema [Recovering/Resolving]
  - Feeling abnormal [Recovering/Resolving]
  - Nervous system disorder [Recovering/Resolving]
  - Decreased appetite [Recovering/Resolving]
  - Drug level increased [Recovering/Resolving]
  - Electrocardiogram abnormal [Recovering/Resolving]
